FAERS Safety Report 24601534 (Version 2)
Quarter: 2025Q3

REPORT INFORMATION
  Report Type: Spontaneous
  Country: EU (occurrence: EU)
  Receive Date: 20241111
  Receipt Date: 20250809
  Transmission Date: 20251021
  Serious: Yes (Other)
  Sender: ALEXION PHARMACEUTICALS
  Company Number: 2024013523-000

PATIENT
  Age: 62 Year
  Sex: Female

DRUGS (27)
  1. QUETIAPINE [Suspect]
     Active Substance: QUETIAPINE
     Dosage: 300 MILLIGRAM, QD,DINNER
     Dates: start: 20230906
  2. QUETIAPINE [Suspect]
     Active Substance: QUETIAPINE
     Dosage: 100 MILLIGRAM, QD
     Route: 065
     Dates: start: 20240820, end: 20240916
  3. QUETIAPINE [Suspect]
     Active Substance: QUETIAPINE
     Dosage: 200 MILLIGRAM, QD
     Route: 065
     Dates: start: 20240826, end: 20240906
  4. OMEPRAZOLE [Suspect]
     Active Substance: OMEPRAZOLE
     Dosage: 20 MILLIGRAM, QD,BREAKFAST
     Dates: start: 20190625
  5. OMEPRAZOLE [Suspect]
     Active Substance: OMEPRAZOLE
     Dosage: 20 MILLIGRAM, QD,BREAKFAST
     Dates: start: 20240821
  6. OLANZAPINE [Suspect]
     Active Substance: OLANZAPINE
     Indication: Affective disorder
     Dosage: 25 MILLIGRAM, QD
     Dates: start: 20240904, end: 20241004
  7. OLANZAPINE [Suspect]
     Active Substance: OLANZAPINE
     Route: 065
  8. CARVEDILOL [Suspect]
     Active Substance: CARVEDILOL
     Dosage: 6.25 MILLIGRAM, BID,1 BREAKFAST, 1 DINNER
     Route: 065
     Dates: start: 20190207
  9. CARVEDILOL [Suspect]
     Active Substance: CARVEDILOL
     Dosage: 6.25 MILLIGRAM, BID
     Route: 065
     Dates: start: 20240821
  10. CALCIFEDIOL [Concomitant]
     Active Substance: CALCIFEDIOL
  11. LORAZEPAM [Concomitant]
     Active Substance: LORAZEPAM
     Dosage: 1 MILLIGRAM, QD
     Route: 065
     Dates: start: 20191022
  12. LORAZEPAM [Concomitant]
     Active Substance: LORAZEPAM
     Dosage: 1 MILLIGRAM, QD
     Route: 065
     Dates: start: 20240820
  13. LORAZEPAM [Concomitant]
     Active Substance: LORAZEPAM
     Dosage: 1 MILLIGRAM, QD
     Route: 065
     Dates: start: 20240907
  14. LORAZEPAM [Concomitant]
     Active Substance: LORAZEPAM
     Dosage: 1 MILLIGRAM, QD
     Route: 065
     Dates: start: 20240912
  15. LORMETAZEPAM [Concomitant]
     Active Substance: LORMETAZEPAM
  16. LORMETAZEPAM [Concomitant]
     Active Substance: LORMETAZEPAM
  17. LORMETAZEPAM [Concomitant]
     Active Substance: LORMETAZEPAM
  18. METAMIZOLE [Concomitant]
     Active Substance: METAMIZOLE
     Dosage: 575 MILLIGRAM, QD
     Route: 065
     Dates: start: 20240201
  19. ACETAMINOPHEN [Concomitant]
     Active Substance: ACETAMINOPHEN
     Route: 065
  20. DULOXETINE [Concomitant]
     Active Substance: DULOXETINE
     Dosage: 90 MILLIGRAM, QD,1 BREAKFAST
     Dates: start: 20230906
  21. DULOXETINE [Concomitant]
     Active Substance: DULOXETINE
     Dosage: 90 MILLIGRAM, QD,1 BREAKFAST
     Dates: start: 20240820
  22. LOSARTAN [Concomitant]
     Active Substance: LOSARTAN
     Dosage: 50 MG/12.5 MG
     Route: 065
     Dates: start: 20230213
  23. LOSARTAN [Concomitant]
     Active Substance: LOSARTAN
     Dosage: 50 MG/12.5 MG
     Route: 065
     Dates: start: 20240821
  24. ENOXAPARIN [Concomitant]
     Active Substance: ENOXAPARIN
     Dosage: 40 MILLIGRAM, QD
     Route: 065
     Dates: start: 20240904, end: 20240913
  25. HALOPERIDOL [Concomitant]
     Active Substance: HALOPERIDOL
     Route: 065
     Dates: start: 20240904, end: 20240926
  26. TERRAMYCIN [Concomitant]
     Active Substance: OXYTETRACYCLINE\OXYTETRACYCLINE HYDROCHLORIDE
     Dosage: UNK, QD
     Route: 065
     Dates: start: 20240905
  27. ARIPIPRAZOLE [Concomitant]
     Active Substance: ARIPIPRAZOLE
     Dosage: 5 MILLIGRAM, QD,5 MG/24H GIVEN ON 17/09 AND 18/09
     Dates: start: 20240916, end: 20240918

REACTIONS (1)
  - Mixed liver injury [Recovering/Resolving]

NARRATIVE: CASE EVENT DATE: 20240926
